FAERS Safety Report 4371557-4 (Version None)
Quarter: 2004Q2

REPORT INFORMATION
  Report Type: 
  Country: None (occurrence: None)
  Receive Date: 20040607
  Receipt Date: 20040524
  Transmission Date: 20050107
  Serious: Yes (Hospitalization)
  Sender: FDA-Public Use
  Company Number: JP-JNJFOC-20040506905

PATIENT
  Sex: Female
  Weight: 50.7 kg

DRUGS (6)
  1. REMICADE [Suspect]
     Route: 041
     Dates: start: 20040301
  2. REMICADE [Suspect]
     Route: 041
     Dates: start: 20040301
  3. REMICADE [Suspect]
     Indication: RHEUMATOID ARTHRITIS
     Route: 041
     Dates: start: 20040301
  4. PREDONINE [Suspect]
     Indication: DRUG USE FOR UNKNOWN INDICATION
     Route: 065
  5. IMURAN [Suspect]
     Indication: DRUG USE FOR UNKNOWN INDICATION
     Route: 065
  6. METHOTREXATE [Concomitant]
     Route: 065
     Dates: start: 20040109

REACTIONS (2)
  - DRUG INTERACTION [None]
  - PNEUMOCYSTIS CARINII PNEUMONIA [None]
